FAERS Safety Report 7088562-X (Version None)
Quarter: 2010Q4

REPORT INFORMATION
  Report Type: 
  Country: None (occurrence: None)
  Receive Date: 20101108
  Receipt Date: 20101029
  Transmission Date: 20110411
  Serious: Yes (Hospitalization, Disabling, Other)
  Sender: FDA-Public Use
  Company Number: BE-ASTRAZENECA-2010SE48301

PATIENT
  Age: 57 Year
  Sex: Male

DRUGS (7)
  1. NAROPIN [Suspect]
     Indication: KNEE OPERATION
     Dosage: 0.5 MG/ 3 ML EPIDURAL + POST SURGERY 2 MG/ML
     Route: 008
     Dates: start: 20100730
  2. SUFENTA PRESERVATIVE FREE [Suspect]
     Indication: KNEE OPERATION
     Dosage: +/- 150 UG ON 200 ML NAROPIN/ML
  3. EMCORETIC [Concomitant]
     Dosage: 10/25 MG DAILY
     Route: 048
  4. EFFEXOR [Concomitant]
     Route: 048
  5. LAMICTAL [Concomitant]
     Route: 048
  6. NETRALAN [Concomitant]
     Dosage: 1/2 COMP
     Route: 048
  7. REMEGEN [Concomitant]
     Route: 048

REACTIONS (2)
  - CAUDA EQUINA SYNDROME [None]
  - PERONEAL NERVE PALSY [None]
